FAERS Safety Report 8180243-4 (Version None)
Quarter: 2012Q1

REPORT INFORMATION
  Report Type: 
  Country: None (occurrence: None)
  Receive Date: 20120215
  Receipt Date: 20120208
  Transmission Date: 20120608
  Serious: Yes (Other)
  Sender: FDA-Public Use
  Company Number: 2010027079

PATIENT
  Age: 56 Year
  Sex: Female
  Weight: 47.6277 kg

DRUGS (30)
  1. HIZENTRA [Suspect]
  2. VICODIN [Concomitant]
  3. THEOPHYLLINE [Concomitant]
  4. LEVAQUIN [Concomitant]
  5. HIZENTRA [Suspect]
  6. HIZENTRA [Suspect]
  7. HIZENTRA [Suspect]
  8. HIZENTRA [Suspect]
  9. PREDNISONE TAB [Concomitant]
  10. AZITHROMYCIN [Concomitant]
  11. HIZENTRA [Suspect]
     Indication: IMMUNODEFICIENCY COMMON VARIABLE
     Dosage: 13 G 1X/WEEK, 65 ML WEEKLY IN 6 SITES OVER 1.5-2 HOURS, SUBCUTANEOUS (13 G 1/WEEK, 65 ML ON SIX SITE
     Route: 058
     Dates: start: 20101201
  12. HIZENTRA [Suspect]
     Indication: IMMUNODEFICIENCY COMMON VARIABLE
     Dosage: 13 G 1X/WEEK, 65 ML WEEKLY IN 6 SITES OVER 1.5-2 HOURS, SUBCUTANEOUS (13 G 1/WEEK, 65 ML ON SIX SITE
     Route: 058
     Dates: start: 20110728, end: 20110728
  13. HIZENTRA [Suspect]
     Indication: IMMUNODEFICIENCY COMMON VARIABLE
     Dosage: 13 G 1X/WEEK, 65 ML WEEKLY IN 6 SITES OVER 1.5-2 HOURS, SUBCUTANEOUS (13 G 1/WEEK, 65 ML ON SIX SITE
     Route: 058
     Dates: start: 20110630
  14. HIZENTRA [Suspect]
     Indication: IMMUNODEFICIENCY COMMON VARIABLE
     Dosage: 13 G 1X/WEEK, 65 ML WEEKLY IN 6 SITES OVER 1.5-2 HOURS, SUBCUTANEOUS (13 G 1/WEEK, 65 ML ON SIX SITE
     Route: 058
     Dates: start: 20120120, end: 20120120
  15. HIZENTRA [Suspect]
  16. FORTEO [Concomitant]
  17. FLONASE [Concomitant]
  18. MUCINEX [Concomitant]
  19. CALCIUM WITH VITAMIN D (CALCIUM WITH VITAMIN D) [Concomitant]
  20. PHENOBARBITAL TAB [Concomitant]
  21. PROVENTIL [Concomitant]
  22. PULMICORT [Concomitant]
  23. HIZENTRA [Suspect]
  24. DUONEB [Concomitant]
  25. HIZENTRA [Suspect]
  26. ALBUTEROL SULFATE [Concomitant]
  27. COUMADIN [Concomitant]
  28. OMEPRAZOLE [Concomitant]
  29. PHENYTOIN [Concomitant]
  30. AUGMENTIN '125' [Concomitant]

REACTIONS (8)
  - LUNG INFECTION [None]
  - INFUSION SITE MASS [None]
  - BRONCHITIS [None]
  - INFUSION SITE IRRITATION [None]
  - INFUSION SITE HAEMATOMA [None]
  - HEADACHE [None]
  - INFUSION SITE EXTRAVASATION [None]
  - UPPER RESPIRATORY TRACT INFECTION [None]
